FAERS Safety Report 5882138-5 (Version None)
Quarter: 2008Q3

REPORT INFORMATION
  Report Type: 
  Country: None (occurrence: None)
  Receive Date: 20080912
  Receipt Date: 20080725
  Transmission Date: 20090109
  Serious: No
  Sender: FDA-Public Use
  Company Number: US-ABBOTT-08P-163-0465723-00

PATIENT
  Sex: Female
  Weight: 95.34 kg

DRUGS (10)
  1. HUMIRA [Suspect]
     Indication: CROHN'S DISEASE
     Route: 050
     Dates: start: 20080414
  2. POTASSIUM CHLORIDE [Concomitant]
     Indication: DRUG USE FOR UNKNOWN INDICATION
     Route: 048
  3. LEVOTHYROXINE SODIUM [Concomitant]
     Indication: HYPOTHYROIDISM
     Route: 048
  4. HYDROCHLOROTHIAZIDE [Concomitant]
     Indication: HYPERTENSION
     Route: 048
  5. CITALOPRAM HYDROBROMIDE [Concomitant]
     Indication: ANXIETY
     Route: 048
     Dates: start: 20060101, end: 20080727
  6. PANTOPRAZOLE [Concomitant]
     Indication: GASTROOESOPHAGEAL REFLUX DISEASE
     Route: 048
     Dates: start: 20080601
  7. MORNIFLUMATE [Concomitant]
     Indication: ALLERGIC SINUSITIS
     Route: 048
  8. SERTRALINE [Concomitant]
     Indication: ANXIETY
     Dosage: EVERY 2-3 DAYS, AS REQUIRED
     Route: 048
  9. FLUTICASONE PROPIONATE [Concomitant]
     Indication: ALLERGIC SINUSITIS
     Route: 045
  10. HYDROXOCOBALAMIN [Concomitant]
     Indication: DRUG USE FOR UNKNOWN INDICATION
     Route: 050
     Dates: start: 20080101

REACTIONS (3)
  - COUGH [None]
  - FATIGUE [None]
  - INFLUENZA LIKE ILLNESS [None]
